FAERS Safety Report 15090665 (Version 2)
Quarter: 2018Q4

REPORT INFORMATION
  Report Type: Not Available
  Country: PT (occurrence: PT)
  Receive Date: 20180629
  Receipt Date: 20181024
  Transmission Date: 20190204
  Serious: Yes (Other)
  Sender: FDA-Public Use
  Company Number: PT-SYNTHON BV-NL01PV18_47068

PATIENT
  Age: 80 Year
  Sex: Male

DRUGS (2)
  1. TAMSULOSINA SANDOZ [Suspect]
     Active Substance: TAMSULOSIN HYDROCHLORIDE
     Indication: URINE FLOW DECREASED
     Dosage: 0.4 MG, QD
     Route: 048
     Dates: start: 2011, end: 20180612
  2. AERIUS (DESLORATADINE) [Concomitant]
     Active Substance: DESLORATADINE
     Indication: RHINITIS ALLERGIC
     Dosage: 1 DF, AS NECESSARY
     Route: 065

REACTIONS (4)
  - Flatulence [Recovered/Resolved]
  - Dizziness [Recovered/Resolved]
  - Balance disorder [Recovered/Resolved]
  - Arrhythmia [Recovered/Resolved]

NARRATIVE: CASE EVENT DATE: 20180613
